FAERS Safety Report 7221070-1 (Version None)
Quarter: 2011Q1

REPORT INFORMATION
  Report Type: 
  Country: None (occurrence: None)
  Receive Date: 20110112
  Receipt Date: 20110110
  Transmission Date: 20110831
  Serious: Yes (Other)
  Sender: FDA-Public Use
  Company Number: US-PFIZER INC-2011006383

PATIENT
  Sex: Female
  Weight: 98.866 kg

DRUGS (7)
  1. SYNTHROID [Concomitant]
     Dosage: UNK
  2. CHANTIX [Suspect]
     Dosage: 1 MG, 2X/DAY
     Dates: end: 20110104
  3. CHANTIX [Suspect]
     Indication: SMOKING CESSATION THERAPY
     Dosage: 0.5 MG, 1X/DAY
     Route: 048
     Dates: start: 20101129
  4. TOPROL-XL [Concomitant]
     Dosage: UNK
  5. FLONASE [Concomitant]
     Dosage: UNK
  6. CARDIZEM LA [Concomitant]
     Dosage: UNK
  7. SYMBICORT [Concomitant]
     Dosage: UNK

REACTIONS (2)
  - PALPITATIONS [None]
  - ARRHYTHMIA [None]
